FAERS Safety Report 11815449 (Version 1)
Quarter: 2015Q4

REPORT INFORMATION
  Report Type: Other
  Country: DE (occurrence: DE)
  Receive Date: 20151209
  Receipt Date: 20151209
  Transmission Date: 20160305
  Serious: Yes (Other)
  Sender: FDA-Public Use
  Company Number: DE-MYLANLABS-2015M1042736

PATIENT

DRUGS (5)
  1. LITHIUM. [Suspect]
     Active Substance: LITHIUM
     Indication: BIPOLAR DISORDER
     Dosage: UNK (SINCE 2007)
     Route: 048
     Dates: start: 20140812, end: 20150401
  2. QUETIAPINE [Suspect]
     Active Substance: QUETIAPINE
     Indication: BIPOLAR DISORDER
     Dosage: UNK (300 [MG/D ]/ SINCE 2012)
     Route: 048
     Dates: start: 20140812, end: 20150401
  3. CELESTAN                           /00008501/ [Concomitant]
     Indication: MATERNAL THERAPY TO ENHANCE FOETAL LUNG MATURITY
     Dosage: 12 MG, QD (12 [MG/D ])
     Route: 030
     Dates: start: 20150329, end: 20150330
  4. FEMIBION                           /07499601/ [Concomitant]
     Indication: PROPHYLAXIS OF NEURAL TUBE DEFECT
     Dosage: UNK (EXACT BEGIN OF FOLIC ACID SUPPLEMENTATION NOT KNOWN)
     Route: 048
     Dates: start: 20150128, end: 20150128
  5. CEFUROXIME. [Concomitant]
     Active Substance: CEFUROXIME
     Indication: PRODUCT USED FOR UNKNOWN INDICATION
     Dosage: 1500 MG, TID (4.5 [G/D (3 X 1.5) ])
     Route: 042
     Dates: start: 20150329, end: 20150401

REACTIONS (3)
  - Exposure during pregnancy [Unknown]
  - Gestational diabetes [Recovered/Resolved]
  - Hypothyroidism [Unknown]
